FAERS Safety Report 12785039 (Version 1)
Quarter: 2016Q3

REPORT INFORMATION
  Report Type: Spontaneous
  Country: US (occurrence: US)
  Receive Date: 20160927
  Receipt Date: 20160927
  Transmission Date: 20161109
  Serious: Yes (Other)
  Sender: FDA-Public Use
  Company Number: US-SAOL THERAPEUTICS-2016SAO00348

PATIENT
  Age: 51 Year
  Sex: Female
  Weight: 70.75 kg

DRUGS (8)
  1. BACLOFEN. [Suspect]
     Active Substance: BACLOFEN
     Indication: PAIN
     Dosage: 749.8 ?G, UNK
     Route: 037
     Dates: start: 20130613
  2. LAMICTAL [Concomitant]
     Active Substance: LAMOTRIGINE
     Dosage: 1 TABLETS, 3X/DAY
  3. LAMICTAL [Concomitant]
     Active Substance: LAMOTRIGINE
     Dosage: 1 TABLETS, 1X/DAY
  4. BACLOFEN. [Suspect]
     Active Substance: BACLOFEN
     Indication: PAIN
  5. BACLOFEN. [Suspect]
     Active Substance: BACLOFEN
     Indication: MULTIPLE SCLEROSIS
     Dosage: 898.9 MG, \DAY
     Route: 037
     Dates: start: 20160125
  6. BACLOFEN. [Suspect]
     Active Substance: BACLOFEN
     Indication: PAIN
  7. LAMICTAL [Concomitant]
     Active Substance: LAMOTRIGINE
     Dosage: 1 TABLETS, 2X/DAY
  8. PAXIL [Concomitant]
     Active Substance: PAROXETINE HYDROCHLORIDE

REACTIONS (30)
  - Device alarm issue [Unknown]
  - Therapy cessation [Unknown]
  - Somnolence [Unknown]
  - Pain in extremity [Unknown]
  - Depression [Unknown]
  - Female sterilisation [Unknown]
  - Mental disorder [Unknown]
  - Paraesthesia [Unknown]
  - Myositis [Unknown]
  - Ankle operation [Unknown]
  - Pruritus [Unknown]
  - Hypotension [Unknown]
  - Dizziness [Unknown]
  - Off label use [Unknown]
  - Hypoaesthesia [Unknown]
  - Tremor [Unknown]
  - Tenderness [Unknown]
  - Myalgia [Unknown]
  - Carpal tunnel decompression [Unknown]
  - Salpingo-oophorectomy bilateral [Unknown]
  - Muscle spasticity [Unknown]
  - Nausea [Unknown]
  - Fatigue [Unknown]
  - Joint swelling [Unknown]
  - Muscle spasms [Unknown]
  - Pain [Unknown]
  - Activities of daily living impaired [Unknown]
  - Peripheral nerve operation [Unknown]
  - Sleep disorder [Unknown]
  - Muscle contracture [Unknown]

NARRATIVE: CASE EVENT DATE: 2009
